FAERS Safety Report 12696891 (Version 1)
Quarter: 2016Q3

REPORT INFORMATION
  Report Type: Spontaneous
  Country: US (occurrence: None)
  Receive Date: 20160829
  Receipt Date: 20160829
  Transmission Date: 20161109
  Serious: Yes (Other)
  Sender: FDA-Public Use
  Company Number: None

PATIENT
  Age: 55 Year
  Sex: Female
  Weight: 93.44 kg

DRUGS (1)
  1. LISINOPRIL 120MG [Suspect]
     Active Substance: LISINOPRIL
     Indication: HYPERTENSION
     Route: 048

REACTIONS (9)
  - Cough [None]
  - Wheezing [None]
  - Chest discomfort [None]
  - Chest pain [None]
  - Headache [None]
  - Swelling [None]
  - Dyspnoea [None]
  - Abdominal pain [None]
  - Abdominal pain upper [None]

NARRATIVE: CASE EVENT DATE: 20160801
